FAERS Safety Report 21037562 (Version 1)
Quarter: 2022Q3

REPORT INFORMATION
  Report Type: Report from Study
  Country: JP (occurrence: JP)
  Receive Date: 20220703
  Receipt Date: 20220703
  Transmission Date: 20221027
  Serious: Yes (Hospitalization)
  Sender: FDA-Public Use
  Company Number: JP-BAYER-2022A089407

PATIENT
  Age: 50 Year
  Sex: Female

DRUGS (14)
  1. VENTAVIS [Suspect]
     Active Substance: ILOPROST
     Indication: Heritable pulmonary arterial hypertension
     Dosage: 2.5 UG, BID
     Route: 055
     Dates: start: 20201104, end: 20201105
  2. VENTAVIS [Suspect]
     Active Substance: ILOPROST
     Indication: Heritable pulmonary arterial hypertension
     Dosage: 2.5 UG, QID
     Route: 055
     Dates: start: 20201106
  3. ADCIRCA [Concomitant]
     Active Substance: TADALAFIL
     Indication: Heritable pulmonary arterial hypertension
     Dosage: DAILY DOSE 40 MG
     Route: 048
  4. OPSUMIT [Concomitant]
     Active Substance: MACITENTAN
     Indication: Heritable pulmonary arterial hypertension
     Dosage: DAILY DOSE 10 MG
     Route: 048
  5. OXYGEN [Concomitant]
     Active Substance: OXYGEN
     Indication: Heritable pulmonary arterial hypertension
     Dosage: UNK
  6. SPIRONOLACTONE [Concomitant]
     Active Substance: SPIRONOLACTONE
     Dosage: DAILY DOSE 50-75 MG
     Route: 048
  7. FUROSEMIDE [Concomitant]
     Active Substance: FUROSEMIDE
     Dosage: 40-60MG DAILY
     Route: 048
  8. FUROSEMIDE [Concomitant]
     Active Substance: FUROSEMIDE
     Dosage: 20 MG, PRN
     Route: 048
  9. ESOMEPRAZOLE [Concomitant]
     Active Substance: ESOMEPRAZOLE
     Indication: Prophylaxis
     Dosage: DAILY DOSE 20 MG
     Route: 048
  10. BETAMETHASONE\CHLORPHENIRAMINE MALEATE [Concomitant]
     Active Substance: BETAMETHASONE\CHLORPHENIRAMINE MALEATE
     Indication: Prophylaxis
     Dosage: DAILY DOSE 2 DF
     Route: 048
  11. FERROUS SULFATE [Concomitant]
     Active Substance: FERROUS SULFATE
     Dosage: DAILY DOSE 105 MG
     Route: 048
  12. POTASSIUM CHLORIDE [Concomitant]
     Active Substance: POTASSIUM CHLORIDE
     Dosage: DAILY DOSE 1800 MG
     Route: 048
  13. CARBAZOCHROME SODIUM SULFONATE [Concomitant]
     Active Substance: CARBAZOCHROME SODIUM SULFONATE
     Indication: Prophylaxis
     Dosage: DAILY DOSE 90 MG
     Route: 048
  14. LACTULOSE [Concomitant]
     Active Substance: LACTULOSE
     Indication: Prophylaxis
     Dosage: DAILY DOSE 60 ML
     Route: 048

REACTIONS (3)
  - Anaemia [Recovering/Resolving]
  - Haematochezia [Recovered/Resolved]
  - Haematemesis [Recovered/Resolved]

NARRATIVE: CASE EVENT DATE: 20201109
